FAERS Safety Report 4773050-3 (Version None)
Quarter: 2005Q3

REPORT INFORMATION
  Report Type: 
  Country: None (occurrence: None)
  Receive Date: 20050919
  Receipt Date: 20050909
  Transmission Date: 20060218
  Serious: Yes (Hospitalization, Other)
  Sender: FDA-Public Use
  Company Number: PHRM2005FR02449

PATIENT
  Age: 3 Year
  Sex: Male

DRUGS (3)
  1. NEORAL [Suspect]
     Indication: RENAL TRANSPLANT
     Route: 048
  2. SANDIMMUNE [Suspect]
     Indication: RENAL TRANSPLANT
     Route: 042
  3. SIMULECT [Suspect]
     Indication: RENAL TRANSPLANT
     Route: 042

REACTIONS (4)
  - CEREBROVASCULAR DISORDER [None]
  - CONVULSION [None]
  - HYPERTENSION [None]
  - NEUROTOXICITY [None]
